FAERS Safety Report 6580360-6 (Version None)
Quarter: 2010Q1

REPORT INFORMATION
  Report Type: 
  Country: None (occurrence: None)
  Receive Date: 20100212
  Receipt Date: 20100201
  Transmission Date: 20100710
  Serious: Yes (Other)
  Sender: FDA-Public Use
  Company Number: PHEH2008US04346

PATIENT
  Sex: Female
  Weight: 76.644 kg

DRUGS (17)
  1. AREDIA [Suspect]
  2. FEMARA [Concomitant]
     Dosage: 2.5 MG, UNK
  3. FOSAMAX [Concomitant]
  4. CALCIUM [Concomitant]
  5. MULTI-VITAMINS [Concomitant]
  6. FLAGYL [Concomitant]
  7. AMOXICILLIN [Concomitant]
  8. VICODIN [Concomitant]
  9. ARANESP [Concomitant]
     Dosage: UNK
  10. CYTOXAN [Concomitant]
     Dosage: UNK
  11. ADRIAMYCIN PFS [Concomitant]
     Dosage: UNK
  12. MAGIC MOUTHWASH [Concomitant]
     Dosage: UNK
     Dates: start: 20050315
  13. PREVACID [Concomitant]
     Dosage: 30 MG BY MOUTH DAILY
     Dates: start: 20050315
  14. MEGACE [Concomitant]
     Dosage: 4 MG
     Dates: start: 20050315
  15. KYTRIL [Concomitant]
     Dosage: UNK
  16. ZOFRAN [Concomitant]
     Dosage: UNK
  17. RADIATION THERAPY [Concomitant]

REACTIONS (12)
  - ANXIETY [None]
  - DENTAL CARIES [None]
  - DISABILITY [None]
  - ENDODONTIC PROCEDURE [None]
  - GINGIVAL INFECTION [None]
  - HEADACHE [None]
  - INJURY [None]
  - ORAL INFECTION [None]
  - OSTEONECROSIS [None]
  - PAIN [None]
  - TOOTH DISORDER [None]
  - TOOTH EXTRACTION [None]
